FAERS Safety Report 8667067 (Version 8)
Quarter: 2013Q2

REPORT INFORMATION
  Report Type: Spontaneous
  Country: FR (occurrence: FR)
  Receive Date: 20120717
  Receipt Date: 20130405
  Transmission Date: 20140414
  Serious: Yes (Hospitalization)
  Sender: FDA-Public Use
  Company Number: FR-BIOGENIDEC-2012BI016421

PATIENT
  Age: 45 Year
  Sex: Female

DRUGS (11)
  1. TYSABRI [Suspect]
     Indication: RELAPSING-REMITTING MULTIPLE SCLEROSIS
     Route: 042
     Dates: start: 20100309, end: 20120423
  2. PAROXETINE [Concomitant]
  3. LYORESAL [Concomitant]
  4. NEURONTIN [Concomitant]
     Route: 048
  5. RIVOTRIL [Concomitant]
     Route: 048
  6. DAFALGAN [Concomitant]
  7. IMOVANE [Concomitant]
     Route: 048
     Dates: end: 201211
  8. PARIET [Concomitant]
     Route: 048
  9. KEPPRA [Concomitant]
     Route: 048
  10. STILNOX [Concomitant]
     Dates: start: 201211
  11. COPAXONE [Concomitant]
     Indication: MULTIPLE SCLEROSIS
     Dates: start: 201207

REACTIONS (3)
  - Progressive multifocal leukoencephalopathy [Not Recovered/Not Resolved]
  - Immune reconstitution inflammatory syndrome [Not Recovered/Not Resolved]
  - Multiple sclerosis relapse [Recovered/Resolved]
